FAERS Safety Report 11326999 (Version 2)
Quarter: 2015Q3

REPORT INFORMATION
  Report Type: Spontaneous
  Country: US (occurrence: US)
  Receive Date: 20150731
  Receipt Date: 20150820
  Transmission Date: 20151125
  Serious: Yes (Other)
  Sender: FDA-Public Use
  Company Number: US-009507513-1507USA011279

PATIENT

DRUGS (1)
  1. TEMODAR [Suspect]
     Active Substance: TEMOZOLOMIDE
     Indication: METASTATIC MALIGNANT MELANOMA
     Dosage: UNK
     Route: 048

REACTIONS (19)
  - Squamous cell carcinoma [Unknown]
  - Lymphopenia [Unknown]
  - Neutropenia [Unknown]
  - Thrombocytopenia [Unknown]
  - Cardiac failure congestive [Unknown]
  - Tachycardia [Unknown]
  - Diarrhoea [Unknown]
  - Vomiting [Unknown]
  - Leukopenia [Unknown]
  - Enterocolitis [Unknown]
  - Myalgia [Unknown]
  - Keratoacanthoma [Unknown]
  - Acute coronary syndrome [Unknown]
  - Hypotension [Unknown]
  - Nausea [Unknown]
  - Anaemia [Unknown]
  - Arthralgia [Unknown]
  - Hepatitis [Unknown]
  - Photosensitivity reaction [Unknown]
